FAERS Safety Report 5502830-1 (Version None)
Quarter: 2007Q4

REPORT INFORMATION
  Report Type: 
  Country: None (occurrence: None)
  Receive Date: 20071026
  Receipt Date: 20071018
  Transmission Date: 20080405
  Serious: Yes (Hospitalization)
  Sender: FDA-Public Use
  Company Number: CHPA2007US11059

PATIENT
  Age: 81 Year
  Sex: Male

DRUGS (1)
  1. MAALOX MS TOTAL STOMACH RELIEF (NCH)(BISMUTH SUBSALICYLATE) SUSPENSION [Suspect]
     Indication: STOMACH DISCOMFORT
     Dosage: 2-3 TSP, QD, ORAL
     Route: 048
     Dates: start: 20071013

REACTIONS (3)
  - FAECES DISCOLOURED [None]
  - PNEUMONIA [None]
  - STOMACH DISCOMFORT [None]
